FAERS Safety Report 25245063 (Version 1)
Quarter: 2025Q2

REPORT INFORMATION
  Report Type: Spontaneous
  Country: CH (occurrence: CH)
  Receive Date: 20250428
  Receipt Date: 20250428
  Transmission Date: 20250717
  Serious: Yes (Hospitalization, Other)
  Sender: SANOFI AVENTIS
  Company Number: None

PATIENT
  Age: 84 Year
  Sex: Female
  Weight: 67 kg

DRUGS (15)
  1. ENOXAPARIN SODIUM [Suspect]
     Active Substance: ENOXAPARIN SODIUM
     Dosage: 80 MG, QD
     Route: 058
     Dates: start: 20250303
  2. METRONIDAZOLE [Interacting]
     Active Substance: METRONIDAZOLE
     Dosage: 500 MG, Q8H
     Route: 042
     Dates: start: 20250301, end: 20250303
  3. AMIKACIN [Interacting]
     Active Substance: AMIKACIN
     Route: 042
     Dates: start: 20250301, end: 20250301
  4. AMIODARONE HYDROCHLORIDE [Interacting]
     Active Substance: AMIODARONE HYDROCHLORIDE
     Dosage: 0.5 MG, Q12H
     Dates: end: 20250228
  5. BISOPROLOL FUMARATE [Suspect]
     Active Substance: BISOPROLOL FUMARATE
     Dosage: 1.25 MG, Q12H
     Route: 048
  6. KETOROLAC TROMETHAMINE [Interacting]
     Active Substance: KETOROLAC TROMETHAMINE
     Route: 042
     Dates: start: 20250302, end: 20250302
  7. CEFTRIAXONE [Concomitant]
     Active Substance: CEFTRIAXONE
     Dosage: 2 G, QD
     Route: 042
     Dates: start: 20250228, end: 20250302
  8. CIPROFLOXACIN [Concomitant]
     Active Substance: CIPROFLOXACIN
     Indication: Colitis
     Dosage: 500 MG, Q12H
     Route: 048
     Dates: start: 20250303, end: 20250305
  9. Dafalgan direct [Concomitant]
     Dosage: 1 G, Q6H
     Route: 048
     Dates: start: 20250301, end: 20250304
  10. Dafalgan direct [Concomitant]
     Route: 048
     Dates: start: 20250305
  11. LASIX [Concomitant]
     Active Substance: FUROSEMIDE
     Dosage: 20 MG, Q12H
     Route: 048
     Dates: start: 20250304, end: 20250305
  12. NEXIUM [Concomitant]
     Active Substance: ESOMEPRAZOLE MAGNESIUM
     Route: 042
     Dates: start: 20250228, end: 20250228
  13. NEXIUM [Concomitant]
     Active Substance: ESOMEPRAZOLE MAGNESIUM
     Dosage: 8 MG, QH
     Route: 042
     Dates: start: 20250228, end: 20250303
  14. NEXIUM [Concomitant]
     Active Substance: ESOMEPRAZOLE MAGNESIUM
     Dosage: 40 MG, Q12H
     Route: 048
     Dates: start: 20250303
  15. FLAGYL [Concomitant]
     Active Substance: METRONIDAZOLE\METRONIDAZOLE HYDROCHLORIDE
     Indication: Colitis
     Dosage: 500 MG, Q8H
     Route: 048
     Dates: start: 20250303, end: 20250305

REACTIONS (2)
  - Electrocardiogram QT prolonged [Recovered/Resolved]
  - Drug interaction [Recovered/Resolved]

NARRATIVE: CASE EVENT DATE: 20250301
